FAERS Safety Report 22588135 (Version 2)
Quarter: 2023Q2

REPORT INFORMATION
  Report Type: Report from Study
  Country: US (occurrence: US)
  Receive Date: 20230612
  Receipt Date: 20230613
  Transmission Date: 20230721
  Serious: No
  Sender: FDA-Public Use
  Company Number: US-002147023-NVSC2023US130202

PATIENT
  Sex: Female

DRUGS (10)
  1. CIPROFLOXACIN [Suspect]
     Active Substance: CIPROFLOXACIN
     Indication: Hidradenitis
     Dosage: UNK
     Route: 065
  2. ATORVASTATIN [Suspect]
     Active Substance: ATORVASTATIN
     Indication: Hidradenitis
     Dosage: UNK
     Route: 065
  3. METOPROLOL [Suspect]
     Active Substance: METOPROLOL
     Indication: Hidradenitis
     Dosage: UNK
     Route: 065
  4. LOSARTAN [Suspect]
     Active Substance: LOSARTAN
     Indication: Hidradenitis
     Dosage: UNK
     Route: 065
  5. CARVEDILOL [Suspect]
     Active Substance: CARVEDILOL
     Indication: Hidradenitis
     Dosage: UNK
     Route: 065
  6. METFORMIN [Suspect]
     Active Substance: METFORMIN HYDROCHLORIDE
     Indication: Hidradenitis
     Dosage: UNK
     Route: 065
  7. FERROUS SULFATE [Suspect]
     Active Substance: FERROUS SULFATE
     Indication: Hidradenitis
     Dosage: UNK
     Route: 065
  8. AMOXICILLIN\CLAVULANIC ACID [Suspect]
     Active Substance: AMOXICILLIN\CLAVULANIC ACID
     Indication: Hidradenitis
     Dosage: UNK
     Route: 065
  9. GABAPENTIN [Suspect]
     Active Substance: GABAPENTIN
     Indication: Hidradenitis
     Dosage: UNK
     Route: 065
  10. LISINOPRIL [Suspect]
     Active Substance: LISINOPRIL
     Indication: Hidradenitis
     Dosage: UNK
     Route: 065

REACTIONS (7)
  - Hidradenitis [Unknown]
  - Fistula [Unknown]
  - Acne [Unknown]
  - Scar [Unknown]
  - Nodule [Unknown]
  - Product use in unapproved indication [Unknown]
  - Drug ineffective [Unknown]
